FAERS Safety Report 5521425-7 (Version None)
Quarter: 2007Q4

REPORT INFORMATION
  Report Type: 
  Country: None (occurrence: None)
  Receive Date: 20071119
  Receipt Date: 20071107
  Transmission Date: 20080405
  Serious: Yes (Other)
  Sender: FDA-Public Use
  Company Number: GB-PFIZER INC-2007094383

PATIENT
  Age: 65 Year
  Sex: Male

DRUGS (2)
  1. CHAMPIX [Suspect]
     Indication: SMOKING CESSATION THERAPY
     Route: 048
  2. SIMVASTATIN [Concomitant]
     Indication: CHOLESTEROSIS
     Route: 048
     Dates: start: 20070319, end: 20070829

REACTIONS (1)
  - COLITIS ULCERATIVE [None]
